FAERS Safety Report 10406919 (Version 2)
Quarter: 2014Q3

REPORT INFORMATION
  Report Type: Spontaneous
  Country: FR (occurrence: None)
  Receive Date: 20140821
  Receipt Date: 20140826
  Transmission Date: 20150326
  Serious: Yes (Hospitalization)
  Sender: FDA-Public Use
  Company Number: 7313155

PATIENT
  Age: 83 Year
  Sex: Female

DRUGS (10)
  1. DIPROSONE DIPROPIONATE (BETAMETHASONE DIPROPIONATE) [Concomitant]
  2. PROPYLTHIOURACIL. [Suspect]
     Active Substance: PROPYLTHIOURACIL
     Indication: PRODUCT USED FOR UNKNOWN INDICATION
     Route: 048
     Dates: start: 20140129, end: 20140318
  3. INEXIUM [Suspect]
     Active Substance: ESOMEPRAZOLE
     Indication: PRODUCT USED FOR UNKNOWN INDICATION
     Route: 048
     Dates: start: 20140130, end: 20140318
  4. PREVISCAN (PENTOXIFYLLINE) [Concomitant]
     Active Substance: PENTOXIFYLLINE
  5. ATACAND [Suspect]
     Active Substance: CANDESARTAN CILEXETIL
     Indication: CARDIAC FAILURE
     Route: 048
     Dates: start: 20140228, end: 20140318
  6. LEVOTHYROX [Suspect]
     Active Substance: LEVOTHYROXINE
     Indication: PRODUCT USED FOR UNKNOWN INDICATION
     Route: 048
     Dates: start: 20140312, end: 20140318
  7. AERIUS [Concomitant]
     Active Substance: DESLORATADINE
  8. BISOPROLOL (BISOPROLOL) [Concomitant]
     Active Substance: BISOPROLOL
  9. DUPHALAC [Concomitant]
     Active Substance: LACTULOSE
  10. LASILIX (FUROSEMIDE) [Concomitant]
     Active Substance: FUROSEMIDE

REACTIONS (10)
  - Condition aggravated [None]
  - Haemoglobin decreased [None]
  - International normalised ratio increased [None]
  - Toxic skin eruption [None]
  - Cardiac failure [None]
  - Cell death [None]
  - Eosinophilia [None]
  - Blood pressure diastolic decreased [None]
  - Cholestasis [None]
  - Overdose [None]

NARRATIVE: CASE EVENT DATE: 20140318
